FAERS Safety Report 14634650 (Version 4)
Quarter: 2019Q1

REPORT INFORMATION
  Report Type: Spontaneous
  Country: US (occurrence: US)
  Receive Date: 20180314
  Receipt Date: 20190328
  Transmission Date: 20190417
  Serious: No
  Sender: FDA-Public Use
  Company Number: US-PFIZER INC-2018100716

PATIENT
  Age: 2 Year
  Sex: Female

DRUGS (2)
  1. GENOTROPIN MQ [Suspect]
     Active Substance: SOMATROPIN
     Dosage: 0.2 MG, DAILY (0.16 MG/KG PER WEEK)
     Dates: start: 2018
  2. GENOTROPIN MQ [Suspect]
     Active Substance: SOMATROPIN
     Dosage: 0.4 MG, DAILY
     Dates: start: 20171117

REACTIONS (3)
  - Viral infection [Unknown]
  - Vomiting [Unknown]
  - Insulin-like growth factor decreased [Unknown]

NARRATIVE: CASE EVENT DATE: 2018
